FAERS Safety Report 25228177 (Version 1)
Quarter: 2025Q2

REPORT INFORMATION
  Report Type: Spontaneous
  Country: US (occurrence: US)
  Receive Date: 20250423
  Receipt Date: 20250423
  Transmission Date: 20250716
  Serious: No
  Sender: AMGEN
  Company Number: US-AMGEN-USASP2025077848

PATIENT
  Age: 34 Year
  Sex: Female

DRUGS (4)
  1. PREDNISONE [Suspect]
     Active Substance: PREDNISONE
     Indication: Pemphigus
     Route: 065
  2. MYCOPHENOLATE MOFETIL [Concomitant]
     Active Substance: MYCOPHENOLATE MOFETIL
  3. RITUXAN [Concomitant]
     Active Substance: RITUXIMAB
  4. DAPSONE [Concomitant]
     Active Substance: DAPSONE

REACTIONS (3)
  - Off label use [Unknown]
  - Antibody test positive [Unknown]
  - Drug effective for unapproved indication [Unknown]
